FAERS Safety Report 6129501-5 (Version None)
Quarter: 2009Q1

REPORT INFORMATION
  Report Type: 
  Country: None (occurrence: None)
  Receive Date: 20090324
  Receipt Date: 20090312
  Transmission Date: 20090719
  Serious: Yes (Death)
  Sender: FDA-Public Use
  Company Number: SK-AMGEN-US339439

PATIENT
  Age: 46 Year
  Sex: Male

DRUGS (3)
  1. ENBREL [Suspect]
     Indication: DRUG USE FOR UNKNOWN INDICATION
     Dosage: 50 MG
     Route: 058
     Dates: start: 20080815, end: 20081201
  2. MEDROL [Concomitant]
     Indication: PSORIATIC ARTHROPATHY
     Dosage: LONG-TERM
     Route: 065
  3. METHOTREXATE [Concomitant]
     Indication: PSORIATIC ARTHROPATHY
     Dosage: LONG-TERM
     Route: 065

REACTIONS (3)
  - ASTHMA [None]
  - CARDIAC FAILURE [None]
  - HEPATIC ENZYME INCREASED [None]
